FAERS Safety Report 6547429-3 (Version None)
Quarter: 2010Q1

REPORT INFORMATION
  Report Type: 
  Country: None (occurrence: None)
  Receive Date: 20100122
  Receipt Date: 20100114
  Transmission Date: 20100710
  Serious: Yes (Life-Threatening)
  Sender: FDA-Public Use
  Company Number: DK-AMGEN-US354327

PATIENT
  Sex: Male

DRUGS (8)
  1. ENBREL [Suspect]
     Indication: PSORIASIS
     Dosage: 50 MG EVERY
     Route: 058
     Dates: start: 20090330
  2. SIMVASTATIN [Concomitant]
     Dosage: UNKNOWN
  3. THIAMINE HYDROCHLORIDE [Concomitant]
     Dosage: UNKNOWN
  4. FERROUS SULFATE TAB [Concomitant]
     Dosage: 100 MG EVERY
  5. PLAVIX [Concomitant]
     Dosage: UNKNOWN
  6. DIMITONE [Concomitant]
     Dosage: UNKNOWN
  7. HJERTEMAGNYL [Concomitant]
     Dosage: UNKNOWN
  8. TRANDOLAPRIL [Concomitant]
     Dosage: UNKNOWN

REACTIONS (1)
  - CARDIAC ARREST [None]
